FAERS Safety Report 7942410 (Version 3)
Quarter: 2013Q1

REPORT INFORMATION
  Report Type: Spontaneous
  Country: US (occurrence: US)
  Receive Date: 20110512
  Receipt Date: 20130107
  Transmission Date: 20140127
  Serious: Yes (Death, Hospitalization)
  Sender: FDA-Public Use
  Company Number: US-JNJFOC-20110503396

PATIENT
  Age: 50 Year
  Sex: Female

DRUGS (4)
  1. ACETAMINOPHEN [Suspect]
     Route: 065
  2. ACETAMINOPHEN [Suspect]
     Indication: PROCEDURAL PAIN
     Dosage: HIGH AMOUNT
     Route: 065
  3. DILAUDID [Suspect]
     Indication: PAIN MANAGEMENT
     Route: 065
  4. VICODIN [Suspect]
     Indication: PAIN MANAGEMENT
     Route: 065

REACTIONS (4)
  - Hepatotoxicity [Fatal]
  - Chronic hepatic failure [Fatal]
  - Hepatic function abnormal [Fatal]
  - Overdose [Fatal]
